FAERS Safety Report 15822129 (Version 1)
Quarter: 2019Q1

REPORT INFORMATION
  Report Type: Spontaneous
  Country: US (occurrence: US)
  Receive Date: 20190114
  Receipt Date: 20190114
  Transmission Date: 20190417
  Serious: Yes (Other)
  Sender: FDA-Public Use
  Company Number: None

PATIENT
  Age: 63 Year
  Sex: Female

DRUGS (2)
  1. ENBREL 25MG SYRINGE [Concomitant]
     Dates: start: 20180807
  2. ENBREL [Suspect]
     Active Substance: ETANERCEPT
     Indication: RHEUMATOID ARTHRITIS
     Dosage: ?          OTHER FREQUENCY:BIW;?
     Route: 058
     Dates: start: 20180807, end: 20190114

REACTIONS (4)
  - Hypoaesthesia [None]
  - Symptom recurrence [None]
  - Sciatica [None]
  - Therapy cessation [None]

NARRATIVE: CASE EVENT DATE: 20180807
